FAERS Safety Report 5514436-9 (Version None)
Quarter: 2007Q4

REPORT INFORMATION
  Report Type: 
  Country: None (occurrence: None)
  Receive Date: 20071113
  Receipt Date: 20070521
  Transmission Date: 20080405
  Serious: No
  Sender: FDA-Public Use
  Company Number: A0652124A

PATIENT
  Age: 82 Year
  Sex: Male

DRUGS (11)
  1. COREG [Suspect]
     Dosage: 12.5MG TWICE PER DAY
     Route: 048
     Dates: start: 20070201
  2. METFORMIN HCL [Concomitant]
  3. GLYBURIDE [Concomitant]
  4. FUROSEMIDE [Concomitant]
  5. EXELON [Concomitant]
  6. LEVOXYL [Concomitant]
  7. TRAZODONE HCL [Concomitant]
  8. WARFARIN SODIUM [Concomitant]
  9. TRAMADOL [Concomitant]
  10. VITAMIN B [Concomitant]
  11. LYRICA [Concomitant]

REACTIONS (1)
  - MUSCULAR WEAKNESS [None]
